FAERS Safety Report 4873820-7 (Version None)
Quarter: 2006Q1

REPORT INFORMATION
  Report Type: 
  Country: None (occurrence: None)
  Receive Date: 20060104
  Receipt Date: 20051222
  Transmission Date: 20060701
  Serious: Yes (Hospitalization)
  Sender: FDA-Public Use
  Company Number: 220594

PATIENT
  Age: 42 Year
  Sex: Female

DRUGS (4)
  1. HERCEPTIN [Suspect]
     Indication: BREAST CANCER METASTATIC
     Dosage: 2 MG/KG
     Dates: end: 20051220
  2. ACETAMINOPHEN [Concomitant]
  3. BENADRYL [Concomitant]
  4. PNEUMONIA VACCINE (PNEUMOCOCCAL VACCINE) [Concomitant]

REACTIONS (2)
  - IMPLANT SITE ERYTHEMA [None]
  - PYREXIA [None]
